FAERS Safety Report 4329974-4 (Version None)
Quarter: 2004Q2

REPORT INFORMATION
  Report Type: 
  Country: None (occurrence: None)
  Receive Date: 20040401
  Receipt Date: 20030411
  Transmission Date: 20050107
  Serious: Yes (Hospitalization)
  Sender: FDA-Public Use
  Company Number: US-MERCK-0304USA01388

PATIENT
  Age: 57 Year
  Sex: Male
  Weight: 90 kg

DRUGS (5)
  1. NAPROSYN [Concomitant]
     Route: 065
  2. VIOXX [Suspect]
     Indication: OSTEOARTHRITIS
     Route: 048
     Dates: start: 20000114
  3. VIOXX [Suspect]
     Route: 048
     Dates: start: 20000114
  4. VIOXX [Suspect]
     Indication: DISCOMFORT
     Route: 048
     Dates: start: 20000114
  5. VIOXX [Suspect]
     Route: 048
     Dates: start: 20000114

REACTIONS (19)
  - ACUTE MYOCARDIAL INFARCTION [None]
  - ATELECTASIS [None]
  - BLOOD CHOLESTEROL INCREASED [None]
  - BLOOD PRESSURE INCREASED [None]
  - CARDIAC FAILURE CONGESTIVE [None]
  - EYE DISORDER [None]
  - HYPERCHOLESTEROLAEMIA [None]
  - INJURY [None]
  - LEUKOCYTOSIS [None]
  - LUNG INFILTRATION [None]
  - NEPHROLITHIASIS [None]
  - OEDEMA PERIPHERAL [None]
  - PLEURAL EFFUSION [None]
  - PRODUCTIVE COUGH [None]
  - PYREXIA [None]
  - SILENT MYOCARDIAL INFARCTION [None]
  - SLEEP APNOEA SYNDROME [None]
  - URTICARIA [None]
  - VENTRICULAR ARRHYTHMIA [None]
